FAERS Safety Report 7816184-9 (Version None)
Quarter: 2011Q4

REPORT INFORMATION
  Report Type: 
  Country: None (occurrence: None)
  Receive Date: 20111015
  Receipt Date: 20111007
  Transmission Date: 20120403
  Serious: Yes (Other)
  Sender: FDA-Public Use
  Company Number: PL-ROCHE-771181

PATIENT
  Sex: Male

DRUGS (2)
  1. COPEGUS [Suspect]
     Indication: HEPATITIS C
     Dosage: DOSE: 1000
     Route: 048
     Dates: start: 20100826, end: 20110408
  2. PEGINTERFERON ALFA-2A [Suspect]
     Indication: HEPATITIS C
     Dosage: DOSE: 180.
     Route: 058
     Dates: start: 20100826, end: 20110408

REACTIONS (1)
  - BILE DUCT CANCER [None]
